FAERS Safety Report 8984148 (Version 1)
Quarter: 2012Q4

REPORT INFORMATION
  Report Type: Spontaneous
  Country: PL (occurrence: None)
  Receive Date: 20121214
  Receipt Date: 20121214
  Transmission Date: 20130627
  Serious: Yes (Other)
  Sender: FDA-Public Use
  Company Number: 2012312664

PATIENT

DRUGS (1)
  1. FRAGMIN (DALTEPARIN SODIUM) SOLUTION FOR INJECTION [Suspect]
     Dosage: 0.2 ml
     Route: 058

REACTIONS (3)
  - Syncope [None]
  - Blood pressure decreased [None]
  - Hyperhidrosis [None]
